FAERS Safety Report 12507603 (Version 2)
Quarter: 2016Q3

REPORT INFORMATION
  Report Type: Report from Study
  Country: MX (occurrence: MX)
  Receive Date: 20160629
  Receipt Date: 20160726
  Transmission Date: 20161109
  Serious: Yes (Disabling, Other)
  Sender: FDA-Public Use
  Company Number: PHHY2016MX087088

PATIENT
  Age: 82 Year
  Sex: Male
  Weight: 79 kg

DRUGS (5)
  1. ASPIRIN PROTECT [Concomitant]
     Active Substance: ASPIRIN
     Indication: PRODUCT USED FOR UNKNOWN INDICATION
     Route: 065
  2. EXFORGE [Suspect]
     Active Substance: AMLODIPINE BESYLATE\VALSARTAN
     Indication: BLOOD CHOLESTEROL ABNORMAL
     Dosage: 1 DF, DAILY (AMLODIPINE 5 MG, VALSARTAN 320 MG))
     Route: 048
  3. LORATADINE. [Concomitant]
     Active Substance: LORATADINE
     Indication: PRODUCT USED FOR UNKNOWN INDICATION
     Route: 065
  4. SENNOSIDE [Concomitant]
     Active Substance: SENNOSIDES
     Indication: PRODUCT USED FOR UNKNOWN INDICATION
     Route: 065
  5. OMEPRAZOLE. [Concomitant]
     Active Substance: OMEPRAZOLE
     Indication: PRODUCT USED FOR UNKNOWN INDICATION
     Route: 065

REACTIONS (6)
  - Ear infection [Recovering/Resolving]
  - Abasia [Not Recovered/Not Resolved]
  - Cartilage injury [Not Recovered/Not Resolved]
  - Tympanic membrane perforation [Recovered/Resolved]
  - Deafness [Not Recovered/Not Resolved]
  - Product use issue [Unknown]

NARRATIVE: CASE EVENT DATE: 20160716
